FAERS Safety Report 7635914-2 (Version None)
Quarter: 2011Q3

REPORT INFORMATION
  Report Type: 
  Country: None (occurrence: None)
  Receive Date: 20110726
  Receipt Date: 20110713
  Transmission Date: 20111222
  Serious: Yes (Hospitalization, Other)
  Sender: FDA-Public Use
  Company Number: CA-ELI_LILLY_AND_COMPANY-CA201107003331

PATIENT
  Sex: Male

DRUGS (23)
  1. SERTRALINE HYDROCHLORIDE [Concomitant]
  2. ATAZANAVIR [Concomitant]
  3. DEXTROAMPHETAMINE [Concomitant]
  4. FUZEON [Concomitant]
  5. VIOXX [Concomitant]
  6. ZYPREXA [Suspect]
     Dosage: 2.5 MG, EACH EVENING
  7. OXAZEPAM [Concomitant]
  8. FOLIC ACID [Concomitant]
  9. RISPERIDONE [Concomitant]
  10. NEVIRAPINE [Concomitant]
  11. ZYPREXA ZYDIS [Suspect]
     Dosage: 5 MG, EACH EVENING
  12. TENOFOVIR DISOPROXIL FUMARATE [Concomitant]
  13. ZOMIG [Concomitant]
  14. ABACAVIR [Concomitant]
  15. RITONAVIR [Concomitant]
  16. EFFEXOR [Concomitant]
  17. ZOPICLONE [Concomitant]
  18. LAMIVUDINE (EPIVIR HBV) [Concomitant]
  19. BUSPAR [Concomitant]
  20. SEROQUEL [Concomitant]
  21. SAQUINAVIR [Concomitant]
  22. KALETRA [Concomitant]
  23. ZYPREXA ZYDIS [Suspect]
     Dosage: 7.5 MG, EACH EVENING

REACTIONS (13)
  - HEPATITIS [None]
  - MYOCARDIAL INFARCTION [None]
  - FANCONI SYNDROME [None]
  - DYSLIPIDAEMIA [None]
  - HYPERBILIRUBINAEMIA [None]
  - PANCREATITIS RELAPSING [None]
  - NEUROPATHY PERIPHERAL [None]
  - RENAL FAILURE [None]
  - DIABETES MELLITUS [None]
  - HYPERTENSION [None]
  - CORONARY ARTERY DISEASE [None]
  - NEPHROTIC SYNDROME [None]
  - PSEUDOCYST [None]
